FAERS Safety Report 7392490-X (Version None)
Quarter: 2011Q2

REPORT INFORMATION
  Report Type: 
  Country: None (occurrence: None)
  Receive Date: 20110404
  Receipt Date: 20110322
  Transmission Date: 20111010
  Serious: Yes (Death, Hospitalization, Other)
  Sender: FDA-Public Use
  Company Number: US-ELI_LILLY_AND_COMPANY-US201011006046

PATIENT
  Sex: Male
  Weight: 47.166 kg

DRUGS (8)
  1. DILTIAZEM [Concomitant]
  2. NASAL SPRAY [Concomitant]
  3. LASIX [Concomitant]
  4. CALCIUM CITRATE [Concomitant]
  5. VITAMIN B-12 [Concomitant]
  6. FORTEO [Suspect]
     Indication: OSTEOPOROSIS
     Dosage: 20 UG, DAILY (1/D)
     Route: 058
  7. VITAMIN D [Concomitant]
  8. FLEXERIL [Concomitant]

REACTIONS (11)
  - NAUSEA [None]
  - BLOOD PRESSURE DECREASED [None]
  - INFREQUENT BOWEL MOVEMENTS [None]
  - HYPOPHAGIA [None]
  - ABDOMINAL HERNIA OBSTRUCTIVE [None]
  - CARDIAC ARREST [None]
  - MYOCARDIAL INFARCTION [None]
  - VOMITING [None]
  - NONSPECIFIC REACTION [None]
  - GASTROINTESTINAL HAEMORRHAGE [None]
  - DEHYDRATION [None]
